FAERS Safety Report 8011339-5 (Version None)
Quarter: 2011Q4

REPORT INFORMATION
  Report Type: 
  Country: None (occurrence: None)
  Receive Date: 20111228
  Receipt Date: 20111228
  Transmission Date: 20120403
  Serious: No
  Sender: FDA-Public Use
  Company Number: None

PATIENT
  Sex: Female

DRUGS (2)
  1. BACTRIM DS [Concomitant]
  2. SULFAMETHOXAZOLE AND TRIMETHOPRIM DOUBLE STRENGTH [Suspect]
     Indication: HIV INFECTION
     Dosage: 1 TAB
     Route: 048

REACTIONS (2)
  - FATIGUE [None]
  - LACTATION DISORDER [None]
